FAERS Safety Report 16728968 (Version 2)
Quarter: 2019Q3

REPORT INFORMATION
  Report Type: Spontaneous
  Country: US (occurrence: US)
  Receive Date: 20190822
  Receipt Date: 20190822
  Transmission Date: 20191005
  Serious: No
  Sender: FDA-Public Use
  Company Number: US-MALLINCKRODT-T201903486

PATIENT
  Age: 66 Year
  Sex: Male
  Weight: 64 kg

DRUGS (4)
  1. OXYCODONE [Suspect]
     Active Substance: OXYCODONE
     Indication: BACK PAIN
     Dosage: 30 MG, Q4H
     Route: 048
     Dates: start: 1996
  2. OXYCODONE [Suspect]
     Active Substance: OXYCODONE
     Indication: SCIATICA
  3. OXYCODONE [Suspect]
     Active Substance: OXYCODONE
     Indication: PAIN
  4. OXYCODONE [Suspect]
     Active Substance: OXYCODONE
     Indication: NECK PAIN

REACTIONS (2)
  - Drug ineffective [Not Recovered/Not Resolved]
  - Product dose omission [Unknown]

NARRATIVE: CASE EVENT DATE: 20190428
